FAERS Safety Report 8439589-4 (Version None)
Quarter: 2012Q2

REPORT INFORMATION
  Report Type: 
  Country: None (occurrence: None)
  Receive Date: 20120615
  Receipt Date: 20120606
  Transmission Date: 20120825
  Serious: Yes (Other)
  Sender: FDA-Public Use
  Company Number: US-JNJFOC-20120604272

PATIENT
  Age: 48 Year
  Sex: Male

DRUGS (3)
  1. REMICADE [Suspect]
     Indication: CROHN'S DISEASE
     Route: 042
  2. REMICADE [Suspect]
     Route: 042
     Dates: start: 20120605, end: 20120605
  3. LIALDA [Concomitant]
     Route: 065

REACTIONS (8)
  - FLUSHING [None]
  - ABSCESS [None]
  - INFUSION RELATED REACTION [None]
  - CHEST DISCOMFORT [None]
  - WHITE BLOOD CELL COUNT DECREASED [None]
  - FISTULA [None]
  - NAUSEA [None]
  - HYPERTENSION [None]
